FAERS Safety Report 16466492 (Version 5)
Quarter: 2019Q3

REPORT INFORMATION
  Report Type: Report from Study
  Country: CA (occurrence: CA)
  Receive Date: 20190622
  Receipt Date: 20190930
  Transmission Date: 20191004
  Serious: Yes (Hospitalization, Other)
  Sender: FDA-Public Use
  Company Number: CA-BRISTOL-MYERS SQUIBB COMPANY-BMS-2018-096242

PATIENT
  Age: 57 Year
  Sex: Female

DRUGS (1)
  1. ABATACEPT [Suspect]
     Active Substance: ABATACEPT
     Indication: JUVENILE IDIOPATHIC ARTHRITIS
     Dosage: 750 MILLIGRAM, Q4WK
     Route: 042
     Dates: start: 20070320

REACTIONS (12)
  - Cough [Recovering/Resolving]
  - Pain in extremity [Unknown]
  - Poor venous access [Unknown]
  - Swelling [Recovering/Resolving]
  - Pyrexia [Unknown]
  - Limb discomfort [Unknown]
  - Localised infection [Recovered/Resolved]
  - Pain [Recovering/Resolving]
  - Arthropathy [Unknown]
  - Infusion site pain [Recovered/Resolved]
  - Erythema [Unknown]
  - Nasal congestion [Recovering/Resolving]

NARRATIVE: CASE EVENT DATE: 20180923
